FAERS Safety Report 8829102 (Version 1)
Quarter: 2012Q4

REPORT INFORMATION
  Report Type: Spontaneous
  Country: US (occurrence: None)
  Receive Date: 20121005
  Receipt Date: 20121005
  Transmission Date: 20130627
  Serious: Yes (Life-Threatening, Hospitalization)
  Sender: FDA-Public Use
  Company Number: None

PATIENT
  Age: 49 Year
  Sex: Female
  Weight: 72.58 kg

DRUGS (1)
  1. ARMOUR THYROID [Concomitant]
     Dates: start: 1989, end: 20120317

REACTIONS (5)
  - Blood pressure increased [None]
  - Tremor [None]
  - Anxiety [None]
  - Chest pain [None]
  - Palpitations [None]
